FAERS Safety Report 6697442-0 (Version None)
Quarter: 2010Q2

REPORT INFORMATION
  Report Type: 
  Country: None (occurrence: None)
  Receive Date: 20100426
  Receipt Date: 20100412
  Transmission Date: 20101027
  Serious: Yes (Hospitalization)
  Sender: FDA-Public Use
  Company Number: CA-MYLANLABS-2010S1004818

PATIENT
  Age: 86 Year
  Sex: Male
  Weight: 81.65 kg

DRUGS (8)
  1. MYLAN-WARFARIN [Suspect]
     Indication: ANTICOAGULANT THERAPY
     Route: 048
     Dates: start: 20100224
  2. PANTOPRAZOLE [Concomitant]
  3. DIOVAN HCT [Concomitant]
     Dosage: 160MG/25MG
  4. ADALAT CC [Concomitant]
     Dosage: XL
  5. METFORMIN HCL [Concomitant]
  6. LIPITOR [Concomitant]
  7. ADVAIR DISKUS 100/50 [Concomitant]
     Dosage: 250/50
  8. SPIRIVA [Concomitant]

REACTIONS (2)
  - HAEMORRHAGE [None]
  - INTERNATIONAL NORMALISED RATIO INCREASED [None]
